FAERS Safety Report 20441487 (Version 1)
Quarter: 2022Q1

REPORT INFORMATION
  Report Type: Other
  Country: CA (occurrence: CA)
  Receive Date: 20220208
  Receipt Date: 20220208
  Transmission Date: 20220423
  Serious: Yes (Other)
  Sender: FDA-Public Use
  Company Number: CA-APOTEX-2022AP002826

PATIENT
  Sex: Female

DRUGS (2)
  1. CITALOPRAM [Interacting]
     Active Substance: CITALOPRAM HYDROBROMIDE
     Indication: Product used for unknown indication
     Dosage: UNK
     Route: 065
  2. DONEPEZIL [Interacting]
     Active Substance: DONEPEZIL
     Indication: Secondary progressive multiple sclerosis
     Dosage: UNK, QD
     Route: 048

REACTIONS (2)
  - Potentiating drug interaction [Unknown]
  - Product use in unapproved indication [Unknown]
